FAERS Safety Report 8624553-2 (Version None)
Quarter: 2012Q3

REPORT INFORMATION
  Report Type: 
  Country: None (occurrence: None)
  Receive Date: 20120827
  Receipt Date: 20120820
  Transmission Date: 20120928
  Serious: Yes (Death)
  Sender: FDA-Public Use
  Company Number: US-ALEXION-A201201538

PATIENT
  Sex: Female
  Weight: 74 kg

DRUGS (17)
  1. CALCIUM CARBONATE [Concomitant]
     Indication: SUPPLEMENTATION THERAPY
     Dosage: 5 G, QD
     Route: 048
     Dates: end: 20120813
  2. COREG [Concomitant]
     Indication: HYPERTENSION
     Dosage: 12.5 MG, BID
     Route: 048
     Dates: end: 20120813
  3. ARANESP [Concomitant]
     Indication: ANAEMIA
     Dosage: 200 MCG QMONTH
     Route: 058
     Dates: end: 20120813
  4. VALCYTE [Concomitant]
     Indication: ANTIVIRAL PROPHYLAXIS
  5. ASCORBIC ACID [Concomitant]
     Indication: SUPPLEMENTATION THERAPY
     Dosage: 500 MG, BID
     Route: 048
     Dates: end: 20120813
  6. SOLIRIS [Suspect]
     Indication: HAEMOLYTIC URAEMIC SYNDROME
     Dosage: 900 MG, QW
     Route: 042
     Dates: start: 20120626, end: 20120718
  7. IRON [Concomitant]
     Indication: ANAEMIA
     Dosage: 150 MG, BID
     Route: 048
     Dates: end: 20120813
  8. AMLODIPINE [Concomitant]
     Indication: HYPERTENSION
     Dosage: 5 MG, QD
     Route: 048
     Dates: end: 20120813
  9. VITAMIN D [Concomitant]
     Indication: SUPPLEMENTATION THERAPY
     Dosage: 1000 UT, QD
     Route: 048
     Dates: end: 20120813
  10. CYCLOSPORINE [Concomitant]
     Indication: PROPHYLAXIS AGAINST TRANSPLANT REJECTION
     Dosage: 225 MG, BID
     Route: 048
     Dates: end: 20120813
  11. LASIX [Concomitant]
     Indication: FLUID RETENTION
     Dosage: 40 MG, QD
     Route: 048
     Dates: end: 20120813
  12. MAGNESIUM OXIDE [Concomitant]
     Indication: MINERAL SUPPLEMENTATION
     Dosage: 400 MG, BID
     Route: 048
     Dates: end: 20120813
  13. MYFORTIC [Concomitant]
     Indication: PROPHYLAXIS AGAINST TRANSPLANT REJECTION
     Dosage: 720 MG, BID
     Route: 048
     Dates: end: 20120813
  14. PENTAMIDINE [Concomitant]
     Indication: ANTIFUNGAL PROPHYLAXIS
     Dosage: 300 MG, QD
     Dates: start: 20120726, end: 20120813
  15. FOLIC ACID [Concomitant]
     Indication: SUPPLEMENTATION THERAPY
     Dosage: 1 G, QD
     Route: 048
     Dates: end: 20120813
  16. PREDNISONE TAB [Concomitant]
     Indication: PROPHYLAXIS AGAINST TRANSPLANT REJECTION
     Dosage: 5 MG, QD
     Route: 048
     Dates: end: 20120813
  17. VALCYTE [Concomitant]
     Indication: PROPHYLAXIS AGAINST TRANSPLANT REJECTION
     Dosage: 450 MG TWICE PER WEEK
     Route: 048
     Dates: end: 20120813

REACTIONS (3)
  - INTRA-ABDOMINAL HAEMORRHAGE [None]
  - SPLENIC RUPTURE [None]
  - SYNCOPE [None]
